FAERS Safety Report 7473749-4 (Version None)
Quarter: 2011Q2

REPORT INFORMATION
  Report Type: 
  Country: None (occurrence: None)
  Receive Date: 20110511
  Receipt Date: 20110504
  Transmission Date: 20111010
  Serious: Yes (Other)
  Sender: FDA-Public Use
  Company Number: HU-BRISTOL-MYERS SQUIBB COMPANY-15546187

PATIENT
  Age: 75 Year
  Sex: Male

DRUGS (2)
  1. IRBESARTAN [Suspect]
     Indication: HYPERTENSION
     Dosage: APROVEL TABS 150 MG TABS, WITH DRAWN END OF MARCH
     Route: 048
     Dates: start: 20040101
  2. AMLODIPINE BESYLATE [Suspect]

REACTIONS (3)
  - ERYTHEMA [None]
  - URTICARIA [None]
  - VASCULITIS [None]
